FAERS Safety Report 12551586 (Version 2)
Quarter: 2017Q4

REPORT INFORMATION
  Report Type: Spontaneous
  Country: US (occurrence: US)
  Receive Date: 20160713
  Receipt Date: 20171012
  Transmission Date: 20180320
  Serious: Yes (Hospitalization)
  Sender: FDA-Public Use
  Company Number: US-SUN PHARMACEUTICAL INDUSTRIES LTD-2016US-120065

PATIENT
  Age: 74 Year
  Sex: Female

DRUGS (1)
  1. LITHIUM. [Suspect]
     Active Substance: LITHIUM
     Indication: PRODUCT USED FOR UNKNOWN INDICATION
     Dosage: UNK
     Route: 048

REACTIONS (9)
  - Endocarditis staphylococcal [Unknown]
  - Nephrogenic diabetes insipidus [Unknown]
  - Infection [Unknown]
  - Toxicity to various agents [Unknown]
  - Urinary tract obstruction [Unknown]
  - Embolic stroke [Unknown]
  - End stage renal disease [Unknown]
  - Uterine prolapse [Unknown]
  - Hydronephrosis [Unknown]
